FAERS Safety Report 15202298 (Version 1)
Quarter: 2018Q3

REPORT INFORMATION
  Report Type: Spontaneous
  Country: IT (occurrence: IT)
  Receive Date: 20180726
  Receipt Date: 20180726
  Transmission Date: 20181010
  Serious: Yes (Other)
  Sender: FDA-Public Use
  Company Number: IT-MYLANLABS-2018M1007087

PATIENT
  Sex: Female

DRUGS (1)
  1. HEPARIN [Suspect]
     Active Substance: HEPARIN SODIUM
     Indication: ESSENTIAL THROMBOCYTHAEMIA
     Dosage: UNK
     Route: 065

REACTIONS (3)
  - Coronary artery disease [Unknown]
  - Heparin-induced thrombocytopenia [Unknown]
  - Venous thrombosis [Unknown]
